FAERS Safety Report 10283496 (Version 1)
Quarter: 2014Q3

REPORT INFORMATION
  Report Type: Spontaneous
  Country: US (occurrence: None)
  Receive Date: 20140702
  Receipt Date: 20140702
  Transmission Date: 20150326
  Serious: Yes (Other)
  Sender: FDA-Public Use
  Company Number: 2014EXPUS00191

PATIENT
  Age: 50 Year
  Sex: Female

DRUGS (2)
  1. ANCEF [Suspect]
     Active Substance: CEFAZOLIN SODIUM
     Indication: PRODUCT USED FOR UNKNOWN INDICATION
  2. EXPAREL [Suspect]
     Active Substance: BUPIVACAINE
     Indication: POSTOPERATIVE ANALGESIA
     Dosage: INJECTION. ONE SET 4 HRS BEFORE INTUBATION, 1 SET 2 HRS BEFORE INTUBATION, OTHER
     Dates: start: 20140612, end: 20140612

REACTIONS (3)
  - Pharyngeal oedema [None]
  - Respiratory arrest [None]
  - Oedema [None]

NARRATIVE: CASE EVENT DATE: 20140612
